FAERS Safety Report 10528312 (Version 2)
Quarter: 2014Q4

REPORT INFORMATION
  Report Type: Spontaneous
  Country: US (occurrence: US)
  Receive Date: 20141020
  Receipt Date: 20141020
  Transmission Date: 20150528
  Serious: Yes (Other)
  Sender: FDA-Public Use
  Company Number: US-GLAXOSMITHKLINE-A0865374A

PATIENT

DRUGS (1)
  1. AVANDIA [Suspect]
     Active Substance: ROSIGLITAZONE MALEATE
     Indication: TYPE 2 DIABETES MELLITUS
     Route: 048
     Dates: start: 200304, end: 200707

REACTIONS (6)
  - Wheezing [Unknown]
  - Chest discomfort [Unknown]
  - Cardiac failure congestive [Unknown]
  - Cough [Unknown]
  - Cardiomegaly [Unknown]
  - Heart rate irregular [Unknown]

NARRATIVE: CASE EVENT DATE: 200707
